FAERS Safety Report 5778788-7 (Version None)
Quarter: 2008Q2

REPORT INFORMATION
  Report Type: 
  Country: None (occurrence: None)
  Receive Date: 20080619
  Receipt Date: 20080606
  Transmission Date: 20081010
  Serious: Yes (Hospitalization)
  Sender: FDA-Public Use
  Company Number: PHNU2008DE02027

PATIENT
  Sex: Female

DRUGS (1)
  1. ZOLEDRONIC ACID [Suspect]
     Indication: OSTEOPOROSIS
     Dosage: 5 MG, UNK
     Route: 042
     Dates: start: 20080527

REACTIONS (7)
  - AMNESIA [None]
  - APHASIA [None]
  - ARTHRALGIA [None]
  - HEADACHE [None]
  - INFLUENZA LIKE ILLNESS [None]
  - PYREXIA [None]
  - SPEECH DISORDER [None]
